FAERS Safety Report 6185882-8 (Version None)
Quarter: 2009Q2

REPORT INFORMATION
  Report Type: 
  Country: None (occurrence: None)
  Receive Date: 20090511
  Receipt Date: 20090501
  Transmission Date: 20091009
  Serious: Yes (Hospitalization)
  Sender: FDA-Public Use
  Company Number: B0573241A

PATIENT
  Sex: Male

DRUGS (6)
  1. DEROXAT [Suspect]
     Indication: DRUG USE FOR UNKNOWN INDICATION
     Dosage: 20MG PER DAY
     Dates: start: 20090228
  2. CLOZAPINE [Suspect]
     Indication: DRUG USE FOR UNKNOWN INDICATION
     Dosage: 500MG PER DAY
  3. DEPAKENE [Concomitant]
     Dosage: 1000MG PER DAY
     Dates: start: 20081001
  4. LEVEMIR [Concomitant]
     Indication: DIABETES MELLITUS
     Dosage: 11U PER DAY
     Route: 058
     Dates: start: 20090227
  5. NOVORAPID [Concomitant]
     Indication: DIABETES MELLITUS
     Route: 058
     Dates: start: 20081101, end: 20090305
  6. BELOC ZOK [Concomitant]

REACTIONS (6)
  - DRUG INTERACTION [None]
  - DRUG LEVEL INCREASED [None]
  - HYPOGLYCAEMIA [None]
  - NOCTURIA [None]
  - SOMNOLENCE [None]
  - WEIGHT DECREASED [None]
